FAERS Safety Report 25816136 (Version 2)
Quarter: 2025Q4

REPORT INFORMATION
  Report Type: Spontaneous
  Country: EU (occurrence: EU)
  Receive Date: 20250918
  Receipt Date: 20251004
  Transmission Date: 20260117
  Serious: Yes (Other)
  Sender: AUROBINDO
  Company Number: EU-ORG-100000920-2025000241

PATIENT
  Age: 20 Year
  Sex: Male

DRUGS (2)
  1. PAROXETINE [Interacting]
     Active Substance: PAROXETINE
     Indication: Product used for unknown indication
     Dosage: 20 MILLIGRAM, ONCE A DAY
     Route: 048
  2. DEXTROMETHORPHAN HYDROBROMIDE [Suspect]
     Active Substance: DEXTROMETHORPHAN HYDROBROMIDE
     Indication: Cough
     Dosage: 1 DOSAGE FORM, 3 TIMES A DAY
     Route: 048
     Dates: start: 20250818, end: 20250819

REACTIONS (5)
  - Agitation [Unknown]
  - Confusional state [Unknown]
  - Tachycardia [Unknown]
  - Chills [Unknown]
  - Drug interaction [Unknown]

NARRATIVE: CASE EVENT DATE: 20250818
